FAERS Safety Report 8409154 (Version 3)
Quarter: 2013Q1

REPORT INFORMATION
  Report Type: Spontaneous
  Country: US (occurrence: US)
  Receive Date: 20120216
  Receipt Date: 20130318
  Transmission Date: 20140127
  Serious: Yes (Hospitalization, Other)
  Sender: FDA-Public Use
  Company Number: US-B.I. PHARMACEUTICALS,INC./RIDGEFIELD-2012-BP-02806BP

PATIENT
  Age: 73 None
  Sex: Female

DRUGS (6)
  1. PRADAXA [Suspect]
     Indication: ATRIAL FIBRILLATION
     Dosage: 300 MG
     Route: 048
     Dates: start: 201012
  2. SOLOTOL [Concomitant]
     Indication: ATRIAL FIBRILLATION
  3. NEXIUM [Concomitant]
     Indication: GASTROOESOPHAGEAL REFLUX DISEASE
  4. CRESTOR [Concomitant]
     Indication: BLOOD CHOLESTEROL INCREASED
  5. AVAPRO [Concomitant]
     Indication: HYPERTENSION
  6. ASPIRIN [Concomitant]
     Dosage: 81 MG
     Route: 048

REACTIONS (11)
  - Rectal haemorrhage [Recovered/Resolved]
  - Venous thrombosis limb [Recovered/Resolved]
  - Complication of device insertion [Recovered/Resolved]
  - Colon cancer [Unknown]
  - Cerebrovascular accident [Recovered/Resolved with Sequelae]
  - Colon cancer [Recovered/Resolved]
  - Arthralgia [Not Recovered/Not Resolved]
  - Dyspepsia [Not Recovered/Not Resolved]
  - Gastric disorder [Unknown]
  - Speech disorder [Recovered/Resolved]
  - Phobia [Not Recovered/Not Resolved]
